FAERS Safety Report 13647379 (Version 1)
Quarter: 2017Q2

REPORT INFORMATION
  Report Type: Spontaneous
  Country: US (occurrence: US)
  Receive Date: 20170613
  Receipt Date: 20170613
  Transmission Date: 20170830
  Serious: Yes (Hospitalization)
  Sender: FDA-Public Use
  Company Number: None

PATIENT
  Age: 71 Year
  Sex: Male

DRUGS (1)
  1. DOFETILIDE. [Suspect]
     Active Substance: DOFETILIDE
     Indication: PRODUCT USED FOR UNKNOWN INDICATION
     Route: 048
     Dates: start: 20161203, end: 20170608

REACTIONS (4)
  - Therapy cessation [None]
  - Pyrexia [None]
  - Tachycardia [None]
  - Nonspecific reaction [None]

NARRATIVE: CASE EVENT DATE: 20170608
